FAERS Safety Report 18868373 (Version 1)
Quarter: 2021Q1

REPORT INFORMATION
  Report Type: Spontaneous
  Country: IN (occurrence: IN)
  Receive Date: 20210209
  Receipt Date: 20210209
  Transmission Date: 20210420
  Serious: Yes (Other)
  Sender: FDA-Public Use
  Company Number: IN-SUN PHARMACEUTICAL INDUSTRIES LTD-2021R1-279642

PATIENT
  Age: 4 Year
  Sex: Male

DRUGS (1)
  1. TRAMADOL. [Suspect]
     Active Substance: TRAMADOL
     Indication: PRODUCT USED FOR UNKNOWN INDICATION
     Dosage: 200 MILLIGRAM
     Route: 065

REACTIONS (6)
  - Hypoglycaemia [Recovered/Resolved]
  - Accidental overdose [Unknown]
  - Vomiting [Unknown]
  - Seizure [Unknown]
  - Hypoxia [Recovered/Resolved]
  - Loss of consciousness [Recovered/Resolved]
